FAERS Safety Report 17045924 (Version 2)
Quarter: 2020Q2

REPORT INFORMATION
  Report Type: Report from Study
  Country: None (occurrence: US)
  Receive Date: 20191119
  Receipt Date: 20200416
  Transmission Date: 20200713
  Serious: Yes (Other)
  Sender: FDA-Public Use
  Company Number: US-ABBVIE-19K-163-2969901-00

PATIENT
  Age: 66 Year
  Sex: Female

DRUGS (3)
  1. VENLAFAXINE [Concomitant]
     Active Substance: VENLAFAXINE HYDROCHLORIDE
     Indication: VESTIBULAR MIGRAINE
  2. PRIMIDONE. [Concomitant]
     Active Substance: PRIMIDONE
     Indication: FAMILIAL TREMOR
  3. HUMIRA [Suspect]
     Active Substance: ADALIMUMAB
     Indication: RHEUMATOID ARTHRITIS
     Route: 058
     Dates: start: 2014

REACTIONS (7)
  - Dermatitis [Unknown]
  - Injection site bruising [Unknown]
  - Hypoaesthesia [Recovered/Resolved]
  - Carpal tunnel syndrome [Recovered/Resolved]
  - Migraine [Recovered/Resolved]
  - Cubital tunnel syndrome [Recovered/Resolved]
  - Allergy to vaccine [Unknown]

NARRATIVE: CASE EVENT DATE: 201908
